FAERS Safety Report 7745979-5 (Version None)
Quarter: 2011Q3

REPORT INFORMATION
  Report Type: 
  Country: None (occurrence: None)
  Receive Date: 20110913
  Receipt Date: 20110830
  Transmission Date: 20111222
  Serious: Yes (Hospitalization, Disabling, Other)
  Sender: FDA-Public Use
  Company Number: US-BAYER-2010-008929

PATIENT
  Age: 16 Year
  Sex: Female

DRUGS (4)
  1. YASMIN [Suspect]
     Indication: ACNE
     Dosage: UNK
     Route: 048
     Dates: start: 20070101, end: 20080101
  2. DROSPIRENONE AND ETHINYL ESTRADIOL [Suspect]
     Indication: ACNE
     Dosage: UNK
     Route: 048
     Dates: start: 20080101
  3. STEROIDS NOS [Concomitant]
     Dosage: UNK
     Dates: start: 20080814
  4. LAXATIVE [Concomitant]
     Dosage: UNK
     Dates: start: 20080821

REACTIONS (5)
  - PULMONARY EMBOLISM [None]
  - THROMBOSIS [None]
  - PAIN [None]
  - DEEP VEIN THROMBOSIS [None]
  - INJURY [None]
